FAERS Safety Report 10572678 (Version 1)
Quarter: 2014Q4

REPORT INFORMATION
  Report Type: Spontaneous
  Country: US (occurrence: None)
  Receive Date: 20141107
  Receipt Date: 20141107
  Transmission Date: 20150529
  Serious: Yes (Hospitalization)
  Sender: FDA-Public Use
  Company Number: None

PATIENT
  Age: 66 Year
  Sex: Female
  Weight: 101.4 kg

DRUGS (1)
  1. VANCOMYCIN [Suspect]
     Active Substance: VANCOMYCIN
     Indication: INFECTION
     Route: 042
     Dates: start: 20141001, end: 20141020

REACTIONS (14)
  - Fatigue [None]
  - Drug reaction with eosinophilia and systemic symptoms [None]
  - Pancytopenia [None]
  - Rash [None]
  - Malaise [None]
  - Nausea [None]
  - Drug eruption [None]
  - Pruritus [None]
  - Acute kidney injury [None]
  - Thrombocytopenia [None]
  - Feeling abnormal [None]
  - Hypophagia [None]
  - Liver function test abnormal [None]
  - Pyrexia [None]

NARRATIVE: CASE EVENT DATE: 20141020
